FAERS Safety Report 23820060 (Version 1)
Quarter: 2024Q2

REPORT INFORMATION
  Report Type: Spontaneous
  Country: US (occurrence: US)
  Receive Date: 20240506
  Receipt Date: 20240506
  Transmission Date: 20240717
  Serious: No
  Sender: FDA-Public Use
  Company Number: US-TOLMAR, INC.-24US048353

PATIENT
  Sex: Male

DRUGS (5)
  1. JATENZO [Suspect]
     Active Substance: TESTOSTERONE UNDECANOATE
     Indication: Hypogonadism male
     Dosage: 198 MILLIGRAM, QD
     Route: 048
     Dates: start: 20240104
  2. JATENZO [Suspect]
     Active Substance: TESTOSTERONE UNDECANOATE
     Dosage: 2 PILLS (198MG EACH) IN THE MORNING AND ONE 198MG PILL AT NIGHT (594MG PER DAY)
     Route: 048
     Dates: start: 20240131
  3. JATENZO [Suspect]
     Active Substance: TESTOSTERONE UNDECANOATE
     Dosage: 198 MILLIGRAM, BID
     Route: 048
     Dates: start: 20240210
  4. REPATHA [Concomitant]
     Active Substance: EVOLOCUMAB
     Indication: Blood cholesterol increased
     Dosage: UNK
  5. COLCHICINE [Concomitant]
     Active Substance: COLCHICINE
     Indication: Pericarditis
     Dosage: UNK

REACTIONS (1)
  - Off label use [Unknown]
